FAERS Safety Report 9047329 (Version 1)
Quarter: 2013Q1

REPORT INFORMATION
  Report Type: Report from Study
  Country: US (occurrence: US)
  Receive Date: 20130131
  Receipt Date: 20130131
  Transmission Date: 20140127
  Serious: No
  Sender: FDA-Public Use
  Company Number: US-ABBOTT-12P-163-0979413-00

PATIENT
  Age: 45 None
  Sex: Female
  Weight: 113.5 kg

DRUGS (9)
  1. HUMIRA [Suspect]
     Dates: start: 20120906
  2. METFORMIN [Concomitant]
     Indication: DIABETES MELLITUS
  3. ANASTROZOLE [Concomitant]
     Indication: BREAST CANCER
  4. BENICAR [Concomitant]
     Indication: HYPERTENSION
  5. AMLODIPINE [Concomitant]
     Indication: HYPERTENSION
  6. ZOLADEX [Concomitant]
     Indication: BREAST CANCER
  7. VITAMIN D3 [Concomitant]
     Indication: VITAMIN SUPPLEMENTATION
  8. PREDNISONE [Concomitant]
     Indication: PSORIATIC ARTHROPATHY
  9. METHOTREXATE [Concomitant]
     Indication: PSORIATIC ARTHROPATHY

REACTIONS (2)
  - Muscular weakness [Not Recovered/Not Resolved]
  - Dizziness [Not Recovered/Not Resolved]
